FAERS Safety Report 7067778-2 (Version None)
Quarter: 2010Q4

REPORT INFORMATION
  Report Type: 
  Country: None (occurrence: None)
  Receive Date: 20101028
  Receipt Date: 20100416
  Transmission Date: 20110411
  Serious: No
  Sender: FDA-Public Use
  Company Number: A0855472A

PATIENT
  Sex: Male

DRUGS (3)
  1. SEREVENT [Suspect]
     Dosage: 1PUFF AS REQUIRED
     Route: 055
     Dates: start: 20081001
  2. LORATADINE [Concomitant]
  3. BENADRYL [Concomitant]

REACTIONS (1)
  - EXPIRED DRUG ADMINISTERED [None]
